FAERS Safety Report 6962030-5 (Version None)
Quarter: 2010Q3

REPORT INFORMATION
  Report Type: 
  Country: None (occurrence: None)
  Receive Date: 20100902
  Receipt Date: 20100813
  Transmission Date: 20110219
  Serious: Yes (Hospitalization)
  Sender: FDA-Public Use
  Company Number: US-BAYER-201013565NA

PATIENT
  Age: 23 Year
  Sex: Female
  Weight: 109 kg

DRUGS (4)
  1. YAZ [Suspect]
     Indication: CONTRACEPTION
     Route: 048
     Dates: start: 20070801, end: 20080201
  2. NSAID'S [Concomitant]
  3. METOCLOPRAMIDE [Concomitant]
     Indication: NAUSEA
     Dates: start: 20080101, end: 20080201
  4. PEPCID [Concomitant]
     Indication: GASTRIC PH INCREASED
     Dates: start: 20080101, end: 20080201

REACTIONS (3)
  - CHOLECYSTITIS [None]
  - CHOLELITHIASIS [None]
  - GALLBLADDER CHOLESTEROLOSIS [None]
